FAERS Safety Report 17167676 (Version 1)
Quarter: 2019Q4

REPORT INFORMATION
  Report Type: Spontaneous
  Country: US (occurrence: US)
  Receive Date: 20191218
  Receipt Date: 20191218
  Transmission Date: 20200122
  Serious: Yes (Death, Other)
  Sender: FDA-Public Use
  Company Number: US-AMGEN-USASP2019207653

PATIENT

DRUGS (5)
  1. DOCETAXEL. [Suspect]
     Active Substance: DOCETAXEL
     Indication: NON-SMALL CELL LUNG CANCER
     Dosage: 75 MILLIGRAM/SQ. METER, Q3WK (ON DAY 8 EVERY 21 DAYS)
     Route: 065
  2. DOCETAXEL. [Suspect]
     Active Substance: DOCETAXEL
     Dosage: 60 MILLIGRAM/SQ. METER, Q3WK (ON DAY 8 EVERY 21 DAYS)
     Route: 065
  3. DEXAMETHASONE. [Concomitant]
     Active Substance: DEXAMETHASONE
     Indication: PREMEDICATION
     Dosage: 8 MILLIGRAM
     Route: 048
  4. FILGRASTIM [Suspect]
     Active Substance: FILGRASTIM
     Indication: PROPHYLAXIS
     Dosage: 5 MICROGRAM/KILOGRAM (ON DAYS 2 TO 6 AND 10 TO 14)
     Route: 058
  5. VINORELBINE [Suspect]
     Active Substance: VINORELBINE TARTRATE
     Indication: NON-SMALL CELL LUNG CANCER
     Dosage: 20 MILLIGRAM/SQ. METER, Q3WK (ON DAYS 1 AND 8 EVERY 21 DAYS)
     Route: 042

REACTIONS (44)
  - Death [Fatal]
  - Myalgia [Unknown]
  - Headache [Unknown]
  - Haemorrhoids [Unknown]
  - Rash [Unknown]
  - Disease progression [Unknown]
  - Infection [Unknown]
  - Arrhythmia supraventricular [Unknown]
  - Thrombocytopenia [Unknown]
  - Chest pain [Unknown]
  - Haemoptysis [Unknown]
  - Pain [Unknown]
  - Dyspnoea [Unknown]
  - Vomiting [Unknown]
  - Constipation [Unknown]
  - Oesophagitis [Unknown]
  - Hyperkalaemia [Unknown]
  - Fatigue [Unknown]
  - Abdominal pain [Unknown]
  - Dry eye [Unknown]
  - Skin exfoliation [Unknown]
  - Muscle spasms [Unknown]
  - Hyperglycaemia [Unknown]
  - Oedema [Unknown]
  - Nausea [Unknown]
  - Decreased appetite [Unknown]
  - Pruritus [Unknown]
  - Alopecia [Unknown]
  - Deafness [Unknown]
  - Anaemia [Unknown]
  - Sepsis [Unknown]
  - Dehydration [Unknown]
  - Neuropathy peripheral [Unknown]
  - Muscular weakness [Unknown]
  - Cough [Unknown]
  - Arthralgia [Unknown]
  - Ill-defined disorder [Unknown]
  - Granulocytopenia [Unknown]
  - Stomatitis [Unknown]
  - Diarrhoea [Unknown]
  - Hot flush [Unknown]
  - Hypotension [Unknown]
  - Haematuria [Unknown]
  - Insomnia [Unknown]
